FAERS Safety Report 10421036 (Version 2)
Quarter: 2014Q4

REPORT INFORMATION
  Report Type: Spontaneous
  Country: US (occurrence: None)
  Receive Date: 20140722
  Receipt Date: 20141121
  Transmission Date: 20150528
  Serious: No
  Sender: FDA-Public Use
  Company Number: 163-10004-14063870

PATIENT
  Age: 32 Year
  Sex: Male
  Weight: 77.11 kg

DRUGS (10)
  1. VITAMIN D3 [Concomitant]
     Active Substance: CHOLECALCIFEROL
  2. OTEZLA [Suspect]
     Active Substance: APREMILAST
     Indication: PSORIATIC ARTHROPATHY
     Route: 048
  3. FLUOXETINE [Concomitant]
     Active Substance: FLUOXETINE\FLUOXETINE HYDROCHLORIDE
  4. QUETIAPINE [Concomitant]
     Active Substance: QUETIAPINE
  5. TESTOSTERONE. [Concomitant]
     Active Substance: TESTOSTERONE
  6. SIMVASTATIN. [Concomitant]
     Active Substance: SIMVASTATIN
  7. METHOTREXATE [Concomitant]
     Active Substance: METHOTREXATE
  8. ESOMEPRAZOLE [Concomitant]
     Active Substance: ESOMEPRAZOLE
  9. LEVOTHYROXINE [Concomitant]
     Active Substance: LEVOTHYROXINE
  10. FENOFIBRATE. [Concomitant]
     Active Substance: FENOFIBRATE

REACTIONS (5)
  - Dizziness [None]
  - Vision blurred [None]
  - Migraine [None]
  - Vomiting [None]
  - Poisoning [None]
